FAERS Safety Report 23925192 (Version 1)
Quarter: 2024Q2

REPORT INFORMATION
  Report Type: Spontaneous
  Country: GB (occurrence: GB)
  Receive Date: 20240531
  Receipt Date: 20240531
  Transmission Date: 20240716
  Serious: Yes (Hospitalization)
  Sender: FDA-Public Use
  Company Number: None

PATIENT
  Age: 78 Year
  Sex: Female
  Weight: 60 kg

DRUGS (7)
  1. INDAPAMIDE [Suspect]
     Active Substance: INDAPAMIDE
     Route: 065
     Dates: start: 20220223
  2. RAMIPRIL [Concomitant]
     Active Substance: RAMIPRIL
     Dates: start: 20210820
  3. LERCANIDIPINE HYDROCHLORIDE [Concomitant]
     Active Substance: LERCANIDIPINE HYDROCHLORIDE
     Dates: start: 20240318
  4. OMEPRAZOLE [Concomitant]
     Active Substance: DONEPEZIL HYDROCHLORIDE\OMEPRAZOLE\OMEPRAZOLE MAGNESIUM
     Dates: start: 20190329
  5. ALGINATES [Concomitant]
     Dosage: 10-20ML TO BE TAKEN AFTER MEALS AND AT BEDTIME
     Dates: start: 20190329
  6. CITALOPRAM [Concomitant]
     Active Substance: CITALOPRAM\CITALOPRAM HYDROBROMIDE
     Dates: start: 20200304
  7. ATENOLOL [Concomitant]
     Active Substance: ATENOLOL
     Dates: start: 20200317

REACTIONS (1)
  - Electrolyte depletion [Recovered/Resolved]

NARRATIVE: CASE EVENT DATE: 20220301
